FAERS Safety Report 7273262-3 (Version None)
Quarter: 2011Q1

REPORT INFORMATION
  Report Type: 
  Country: None (occurrence: None)
  Receive Date: 20110203
  Receipt Date: 20101102
  Transmission Date: 20110831
  Serious: No
  Sender: FDA-Public Use
  Company Number: US-ABBOTT-10P-163-0683267-00

PATIENT
  Sex: Female
  Weight: 68.1 kg

DRUGS (7)
  1. SYNTHROID [Suspect]
     Dosage: APPX 62MCG DAILY: PATIENT CUTS 75MCG TAB
     Dates: start: 20100901
  2. LEVOTHYROXINE SODIUM [Suspect]
     Indication: LYME DISEASE
     Dates: start: 20100301, end: 20100801
  3. FLUCONAZOLE [Concomitant]
     Indication: LYME DISEASE
  4. LEVOTHYROXINE SODIUM [Suspect]
  5. SYNTHROID [Suspect]
     Indication: THYROID DISORDER
     Dates: start: 20090901, end: 20100301
  6. SYNTHROID [Suspect]
     Dates: start: 20100901, end: 20100901
  7. DOXYCYCLINE [Concomitant]
     Indication: LYME DISEASE

REACTIONS (4)
  - ALOPECIA [None]
  - HYPERHIDROSIS [None]
  - INCORRECT DOSE ADMINISTERED [None]
  - DECREASED APPETITE [None]
